FAERS Safety Report 8299462-1 (Version None)
Quarter: 2012Q2

REPORT INFORMATION
  Report Type: 
  Country: None (occurrence: None)
  Receive Date: 20120419
  Receipt Date: 20120327
  Transmission Date: 20120825
  Serious: Yes (Hospitalization)
  Sender: FDA-Public Use
  Company Number: CZ-PFIZER INC-2012078148

PATIENT
  Sex: Female

DRUGS (1)
  1. CLINDAMYCIN HCL [Suspect]

REACTIONS (1)
  - DRUG ERUPTION [None]
